FAERS Safety Report 16383796 (Version 1)
Quarter: 2019Q2

REPORT INFORMATION
  Report Type: Spontaneous
  Country: US (occurrence: US)
  Receive Date: 20190531
  Receipt Date: 20190531
  Transmission Date: 20190711
  Serious: Yes (Other)
  Sender: FDA-Public Use
  Company Number: None

PATIENT
  Age: 57 Year
  Sex: Female

DRUGS (1)
  1. MIRTAZEPINE [Suspect]
     Active Substance: MIRTAZAPINE
     Dates: start: 20190424

REACTIONS (1)
  - Alopecia [None]

NARRATIVE: CASE EVENT DATE: 20190529
